FAERS Safety Report 9034969 (Version 1)
Quarter: 2013Q1

REPORT INFORMATION
  Report Type: Spontaneous
  Country: DK (occurrence: None)
  Receive Date: 20130118
  Receipt Date: 20130118
  Transmission Date: 20140127
  Serious: Yes (Hospitalization)
  Sender: FDA-Public Use
  Company Number: 2013MA000393

PATIENT
  Age: 65 Year
  Sex: Male

DRUGS (4)
  1. BUTALBITAL, ASPIRIN (ACETYLSALICYLIC ACID) AND CAFFEINE TABLETS USP 50MG/325MG/40MG (AELLC) (BUTALBITAL, ASPIRIN AND CAFFEINE)? [Suspect]
     Indication: CORONARY ARTERY BYPASS
     Route: 048
     Dates: end: 20120813
  2. HYDROXYCARBAMIDE [Concomitant]
  3. ALLOPURINOL [Concomitant]
  4. ROSUVASTATIN [Concomitant]

REACTIONS (1)
  - Duodenal ulcer haemorrhage [None]
